FAERS Safety Report 8947820 (Version 1)
Quarter: 2012Q4

REPORT INFORMATION
  Report Type: Spontaneous
  Country: DK (occurrence: None)
  Receive Date: 20121127
  Receipt Date: 20121127
  Transmission Date: 20130627
  Serious: Yes (Other)
  Sender: FDA-Public Use
  Company Number: 2012MA013556

PATIENT
  Age: 57 Year
  Sex: Female

DRUGS (8)
  1. VINORELBINE [Suspect]
     Indication: DRUG USE FOR UNKNOWN INDICATION
     Dates: start: 20121126
  2. OXALIPLATIN FOR INJECTION [Suspect]
     Indication: DRUG USE FOR UNKNOWN INDICATION
  3. TAXOL [Suspect]
     Indication: DRUG USE FOR UNKNOWN INDICATION
  4. ARIMIDEX (NO PREF. NAME) [Suspect]
     Indication: DRUG USE FOR UNKNOWN INDICATION
  5. ZOLADEX [Suspect]
     Indication: DRUG USE FOR UNKNOWN INDICATION
  6. FASLODEX [Suspect]
     Indication: DRUG USE FOR UNKNOWN INDICATION
     Route: 042
  7. HERCEPTIN [Suspect]
     Indication: HER-2 POSITIVE BREAST CANCER
  8. XELODA [Suspect]
     Indication: HER-2 POSITIVE BREAST CANCER

REACTIONS (2)
  - Metastases to liver [None]
  - Cardiotoxicity [None]
